FAERS Safety Report 21620392 (Version 1)
Quarter: 2022Q4

REPORT INFORMATION
  Report Type: Spontaneous
  Country: US (occurrence: None)
  Receive Date: 20221121
  Receipt Date: 20221121
  Transmission Date: 20230113
  Serious: Yes (Other)
  Sender: FDA-Public Use
  Company Number: US-ROCHE-3219823

PATIENT
  Age: 77 Year
  Sex: Male
  Weight: 90.800 kg

DRUGS (3)
  1. GAVRETO [Suspect]
     Active Substance: PRALSETINIB
     Indication: Thyroid cancer
     Dosage: NO
     Route: 048
     Dates: start: 20210419, end: 20220803
  2. GAVRETO [Suspect]
     Active Substance: PRALSETINIB
     Indication: Lung cancer metastatic
  3. VEMLIDY [Concomitant]
     Active Substance: TENOFOVIR ALAFENAMIDE FUMARATE
     Indication: Hepatitis B
     Route: 048
     Dates: start: 20220803

REACTIONS (2)
  - Hepatitis B [Not Recovered/Not Resolved]
  - Hepatic enzyme increased [Recovered/Resolved]

NARRATIVE: CASE EVENT DATE: 20220803
